FAERS Safety Report 9406333 (Version 1)
Quarter: 2013Q3

REPORT INFORMATION
  Report Type: Spontaneous
  Country: JM (occurrence: JM)
  Receive Date: 20130717
  Receipt Date: 20130717
  Transmission Date: 20140515
  Serious: Yes (Death, Hospitalization, Other)
  Sender: FDA-Public Use
  Company Number: JM-PFIZER INC-2013205187

PATIENT
  Age: 22 Year
  Sex: Female

DRUGS (2)
  1. CLINDAMYCIN PHOSPHATE [Suspect]
     Indication: TOOTH EXTRACTION
     Dosage: UNK
  2. CLINDAMYCIN PHOSPHATE [Suspect]
     Indication: TOOTH ABSCESS

REACTIONS (1)
  - Clostridium difficile infection [Fatal]
